FAERS Safety Report 8620911-0 (Version None)
Quarter: 2012Q3

REPORT INFORMATION
  Report Type: 
  Country: None (occurrence: None)
  Receive Date: 20120824
  Receipt Date: 20120814
  Transmission Date: 20120928
  Serious: Yes (Other)
  Sender: FDA-Public Use
  Company Number: CA-BRISTOL-MYERS SQUIBB COMPANY-16857393

PATIENT
  Age: 45 Year
  Sex: Female

DRUGS (9)
  1. PLAQUENIL [Concomitant]
  2. VITAMIN D [Concomitant]
     Dosage: TABS
  3. FOLIC ACID [Concomitant]
  4. HYDROMORPHONE HYDROCHLORIDE [Concomitant]
  5. ORENCIA [Suspect]
     Indication: RHEUMATOID ARTHRITIS
     Dosage: LAST INFUSION:17JUL2012
     Route: 042
     Dates: start: 20110101
  6. PREDNISONE TAB [Concomitant]
  7. METHOTREXATE [Concomitant]
  8. ALENDRONATE SODIUM [Concomitant]
     Dosage: RIVA-ALENDRONATE
  9. DEXLANSOPRAZOLE [Concomitant]

REACTIONS (2)
  - GENERALISED ERYTHEMA [None]
  - BLOOD PRESSURE INCREASED [None]
